FAERS Safety Report 4449606-4 (Version None)
Quarter: 2004Q3

REPORT INFORMATION
  Report Type: 
  Country: None (occurrence: None)
  Receive Date: 20040913
  Receipt Date: 20040906
  Transmission Date: 20050211
  Serious: Yes (Life-Threatening, Hospitalization)
  Sender: FDA-Public Use
  Company Number: FRWYE021107SEP04

PATIENT
  Age: 74 Year
  Sex: Male

DRUGS (7)
  1. EFFEXOR [Suspect]
     Indication: MAJOR DEPRESSION
     Dosage: 375 MG DAILY AT THE TIME OF THE EVENT ONSET, ORAL
     Route: 048
     Dates: start: 20040701, end: 20040801
  2. RISPERDAL [Concomitant]
  3. TERCIAN (CYAMEMAZINE) [Concomitant]
  4. IMOVANE (ZOPICLONE) [Concomitant]
  5. SECTRAL [Concomitant]
  6. COZAAR [Concomitant]
  7. ASPIRIN [Concomitant]

REACTIONS (3)
  - PNEUMONIA [None]
  - PNEUMONIA ASPIRATION [None]
  - RESPIRATORY DISTRESS [None]
